FAERS Safety Report 17991016 (Version 4)
Quarter: 2021Q3

REPORT INFORMATION
  Report Type: Spontaneous
  Country: US (occurrence: US)
  Receive Date: 20200707
  Receipt Date: 20210930
  Transmission Date: 20211014
  Serious: Yes (Other)
  Sender: FDA-Public Use
  Company Number: US-ASTRAZENECA-2020SE84442

PATIENT
  Age: 67 Year
  Sex: Female
  Weight: 77.1 kg

DRUGS (72)
  1. PRILOSEC [Suspect]
     Active Substance: OMEPRAZOLE MAGNESIUM
     Indication: GASTROOESOPHAGEAL REFLUX DISEASE
     Route: 048
     Dates: start: 2009
  2. GLYBURIDE. [Concomitant]
     Active Substance: GLYBURIDE
     Dates: start: 20040505
  3. RANITIDINE. [Concomitant]
     Active Substance: RANITIDINE
     Dates: start: 20040903
  4. LISINOPRIL. [Concomitant]
     Active Substance: LISINOPRIL
     Indication: HYPERTENSION
     Dates: start: 20041018
  5. TIZANIDINE. [Concomitant]
     Active Substance: TIZANIDINE
     Dates: start: 20130813
  6. CYCLOBENZAPRINE. [Concomitant]
     Active Substance: CYCLOBENZAPRINE
     Dates: start: 20140115
  7. AMITRIPTYLINE [Concomitant]
     Active Substance: AMITRIPTYLINE
     Dates: start: 20130121
  8. AZITHROMYCIN ANHYDROUS. [Concomitant]
     Active Substance: AZITHROMYCIN ANHYDROUS
     Indication: INFECTION
  9. PREMARIN [Concomitant]
     Active Substance: ESTROGENS, CONJUGATED
  10. VALTREX [Concomitant]
     Active Substance: VALACYCLOVIR HYDROCHLORIDE
  11. LEXAPRO [Concomitant]
     Active Substance: ESCITALOPRAM OXALATE
  12. NEXIUM [Suspect]
     Active Substance: ESOMEPRAZOLE MAGNESIUM
     Indication: GASTROOESOPHAGEAL REFLUX DISEASE
     Route: 048
  13. IBUPROFEN. [Concomitant]
     Active Substance: IBUPROFEN
     Indication: PAIN
     Dates: start: 2015, end: 2021
  14. BACLOFEN. [Concomitant]
     Active Substance: BACLOFEN
     Dates: start: 20141024
  15. METOPROLOL. [Concomitant]
     Active Substance: METOPROLOL
     Dates: start: 20040903
  16. PROMETHAZINE [Concomitant]
     Active Substance: PROMETHAZINE HYDROCHLORIDE
     Dates: start: 20130703
  17. NYSTATIN. [Concomitant]
     Active Substance: NYSTATIN
  18. CLOBETASOL [Concomitant]
     Active Substance: CLOBETASOL
  19. ZALEPLON. [Concomitant]
     Active Substance: ZALEPLON
  20. PRILOSEC [Suspect]
     Active Substance: OMEPRAZOLE MAGNESIUM
     Indication: GASTROOESOPHAGEAL REFLUX DISEASE
     Dosage: GENERIC
     Route: 065
     Dates: start: 20120605
  21. GEMFIBROZIL. [Concomitant]
     Active Substance: GEMFIBROZIL
     Dates: start: 20141124
  22. MUCINEX [Concomitant]
     Active Substance: GUAIFENESIN
  23. VITAMIN B [Concomitant]
     Active Substance: VITAMIN B
  24. NAPROXEN. [Concomitant]
     Active Substance: NAPROXEN
     Indication: PAIN
     Dates: start: 2017
  25. NEXIUM [Suspect]
     Active Substance: ESOMEPRAZOLE MAGNESIUM
     Indication: GASTROOESOPHAGEAL REFLUX DISEASE
     Route: 048
     Dates: start: 200501, end: 200812
  26. PRILOSEC [Suspect]
     Active Substance: OMEPRAZOLE MAGNESIUM
     Indication: GASTROOESOPHAGEAL REFLUX DISEASE
     Dosage: GENERIC
     Route: 065
     Dates: start: 20180604
  27. FLUVIRIN NOS [Concomitant]
     Active Substance: INFLUENZA VIRUS VACCINE
  28. LIPITOR [Concomitant]
     Active Substance: ATORVASTATIN CALCIUM
  29. TOPROL XL [Concomitant]
     Active Substance: METOPROLOL SUCCINATE
  30. FEXOFENADINE [Concomitant]
     Active Substance: FEXOFENADINE HYDROCHLORIDE
  31. MIRALAX [Concomitant]
     Active Substance: POLYETHYLENE GLYCOL 3350
  32. NEXIUM [Suspect]
     Active Substance: ESOMEPRAZOLE MAGNESIUM
     Indication: GASTROOESOPHAGEAL REFLUX DISEASE
     Route: 048
     Dates: start: 20081120
  33. PRILOSEC [Suspect]
     Active Substance: OMEPRAZOLE MAGNESIUM
     Indication: GASTROOESOPHAGEAL REFLUX DISEASE
     Dosage: GENERIC
     Route: 065
     Dates: start: 20200905
  34. ZOLPIDEM [Concomitant]
     Active Substance: ZOLPIDEM TARTRATE
     Dates: start: 20180115
  35. HYDROCODONE [Concomitant]
     Active Substance: HYDROCODONE
     Dates: start: 20130903
  36. OXYCODONE [Concomitant]
     Active Substance: OXYCODONE
     Dates: start: 20130814
  37. AMOXICILLIN. [Concomitant]
     Active Substance: AMOXICILLIN
     Dates: start: 20131227
  38. MORPHIN [Concomitant]
     Active Substance: MORPHINE
  39. ENALAPRIL [Concomitant]
     Active Substance: ENALAPRIL
  40. NARCAN [Concomitant]
     Active Substance: NALOXONE HYDROCHLORIDE
  41. FAMOTIDINE. [Concomitant]
     Active Substance: FAMOTIDINE
     Dates: start: 20180702, end: 20180709
  42. DIAZEPAM. [Concomitant]
     Active Substance: DIAZEPAM
     Dates: start: 20130826
  43. SIMVASTATIN. [Concomitant]
     Active Substance: SIMVASTATIN
     Indication: BLOOD CHOLESTEROL INCREASED
     Dates: start: 20130624
  44. ONDANSETRON [Concomitant]
     Active Substance: ONDANSETRON
     Dates: start: 20140115
  45. BUPROPION. [Concomitant]
     Active Substance: BUPROPION
     Dates: start: 20131227
  46. KETOCONAZOL [Concomitant]
     Active Substance: KETOCONAZOLE
     Dates: start: 20150908
  47. FLUCONAZOLE. [Concomitant]
     Active Substance: FLUCONAZOLE
  48. METOCLOPRAMIDE. [Concomitant]
     Active Substance: METOCLOPRAMIDE
  49. FERROUS SULFATE. [Concomitant]
     Active Substance: FERROUS SULFATE
  50. TRICOR [Concomitant]
     Active Substance: FENOFIBRATE
  51. ACTOS [Concomitant]
     Active Substance: PIOGLITAZONE HYDROCHLORIDE
  52. NITROGLYCERIN. [Concomitant]
     Active Substance: NITROGLYCERIN
  53. ARICEPT [Concomitant]
     Active Substance: DONEPEZIL HYDROCHLORIDE
  54. ENALAPRIL [Concomitant]
     Active Substance: ENALAPRIL
     Indication: HYPERTENSION
     Dates: start: 2011, end: 2018
  55. PRILOSEC [Suspect]
     Active Substance: OMEPRAZOLE MAGNESIUM
     Indication: GASTROOESOPHAGEAL REFLUX DISEASE
     Dosage: GENERIC
     Route: 065
     Dates: start: 20100225
  56. TRIAMCINOLON [Concomitant]
     Dates: start: 20040423
  57. DULOXETINE. [Concomitant]
     Active Substance: DULOXETINE
     Dates: start: 20140102
  58. PROAIR HFA [Concomitant]
     Active Substance: ALBUTEROL SULFATE
  59. POTASSIUM CHLORIDE. [Concomitant]
     Active Substance: POTASSIUM CHLORIDE
  60. AMBIEN [Concomitant]
     Active Substance: ZOLPIDEM TARTRATE
  61. LIDODERM [Concomitant]
     Active Substance: LIDOCAINE
  62. VIGAMOX [Concomitant]
     Active Substance: MOXIFLOXACIN HYDROCHLORIDE
  63. FORTAZ [Concomitant]
     Active Substance: CEFTAZIDIME SODIUM
  64. ATORVASTATIN [Concomitant]
     Active Substance: ATORVASTATIN
     Indication: BLOOD CHOLESTEROL INCREASED
     Dates: start: 2014
  65. PRILOSEC [Suspect]
     Active Substance: OMEPRAZOLE MAGNESIUM
     Indication: GASTROOESOPHAGEAL REFLUX DISEASE
     Route: 048
     Dates: start: 200501, end: 200812
  66. PRILOSEC OTC [Suspect]
     Active Substance: OMEPRAZOLE MAGNESIUM
     Indication: GASTROOESOPHAGEAL REFLUX DISEASE
     Route: 048
     Dates: start: 2004, end: 2021
  67. FLUOXETINE [Concomitant]
     Active Substance: FLUOXETINE HYDROCHLORIDE
     Indication: DEPRESSION
     Dates: start: 20040505
  68. LEVOTHYROXINE. [Concomitant]
     Active Substance: LEVOTHYROXINE
     Dates: start: 20130624
  69. LYRICA [Concomitant]
     Active Substance: PREGABALIN
     Dates: start: 20130808
  70. CYMBALTA [Concomitant]
     Active Substance: DULOXETINE HYDROCHLORIDE
     Dates: start: 20130816
  71. ALENDRONATE [Concomitant]
     Active Substance: ALENDRONATE SODIUM
  72. DOXYCYCLINE. [Concomitant]
     Active Substance: DOXYCYCLINE

REACTIONS (3)
  - Acute kidney injury [Recovered/Resolved]
  - Chronic kidney disease [Not Recovered/Not Resolved]
  - Gastrooesophageal reflux disease [Not Recovered/Not Resolved]

NARRATIVE: CASE EVENT DATE: 2018
